FAERS Safety Report 6956379-X (Version None)
Quarter: 2010Q3

REPORT INFORMATION
  Report Type: 
  Country: None (occurrence: None)
  Receive Date: 20100830
  Receipt Date: 20100823
  Transmission Date: 20110219
  Serious: Yes (Hospitalization)
  Sender: FDA-Public Use
  Company Number: A0878003A

PATIENT
  Sex: Female
  Weight: 165 kg

DRUGS (8)
  1. SERETIDE [Suspect]
     Indication: ASTHMA
     Route: 055
     Dates: start: 20000101
  2. DEFLAZACORT [Concomitant]
     Dates: start: 20040101
  3. MUCOSOLVAN [Concomitant]
     Dates: start: 20040101
  4. BUDECORT [Concomitant]
     Route: 045
     Dates: start: 20100419
  5. GALANTAMINE HYDROBROMIDE [Concomitant]
     Dosage: 1TAB AT NIGHT
     Dates: start: 20100401
  6. MICARDIS [Concomitant]
     Dosage: 1TAB PER DAY
     Dates: start: 20020101
  7. PANTOPRAZOLE [Concomitant]
     Dosage: 1TAB PER DAY
     Dates: start: 20040101
  8. ADALAT [Concomitant]
     Dosage: 1TAB UNKNOWN
     Dates: start: 20020101

REACTIONS (7)
  - APHONIA [None]
  - ASTHMATIC CRISIS [None]
  - CHEST PAIN [None]
  - DYSPNOEA [None]
  - FATIGUE [None]
  - OVERDOSE [None]
  - RESPIRATORY DISORDER [None]
